FAERS Safety Report 25177329 (Version 3)
Quarter: 2025Q2

REPORT INFORMATION
  Report Type: Spontaneous
  Country: PT (occurrence: PT)
  Receive Date: 20250409
  Receipt Date: 20250429
  Transmission Date: 20250717
  Serious: Yes (Hospitalization)
  Sender: ROCHE
  Company Number: PT-ROCHE-10000247808

PATIENT
  Age: 59 Year
  Sex: Male

DRUGS (1)
  1. BEVACIZUMAB [Suspect]
     Active Substance: BEVACIZUMAB
     Indication: Glioblastoma
     Route: 065

REACTIONS (2)
  - Pancreatitis acute [Unknown]
  - Off label use [Unknown]
